FAERS Safety Report 23181672 (Version 1)
Quarter: 2023Q4

REPORT INFORMATION
  Report Type: Spontaneous
  Country: US (occurrence: None)
  Receive Date: 20231113
  Receipt Date: 20231113
  Transmission Date: 20240110
  Serious: Yes (Other)
  Sender: FDA-Public Use
  Company Number: None

PATIENT
  Age: 3 Year
  Sex: Male

DRUGS (6)
  1. HEMLIBRA [Suspect]
     Active Substance: EMICIZUMAB-KXWH
     Indication: Factor VIII deficiency
     Dosage: OTHER FREQUENCY : EVERY7DAYS;?
     Route: 058
     Dates: start: 20210521
  2. ADVATE [Concomitant]
  3. ADVATE [Concomitant]
     Active Substance: ANTIHEMOPHILIC FACTOR, HUMAN RECOMBINANT
  4. AMINOCAPROIC ACID [Concomitant]
  5. AMINOCAPROIC SOL [Concomitant]
  6. HYDROCORT CRE 1% [Concomitant]

REACTIONS (3)
  - Epistaxis [None]
  - Mouth haemorrhage [None]
  - Therapy cessation [None]

NARRATIVE: CASE EVENT DATE: 20231103
